FAERS Safety Report 12437331 (Version 1)
Quarter: 2016Q2

REPORT INFORMATION
  Report Type: Spontaneous
  Country: US (occurrence: None)
  Receive Date: 20160603
  Receipt Date: 20160603
  Transmission Date: 20160815
  Serious: Yes (Hospitalization)
  Sender: FDA-Public Use
  Company Number: None

PATIENT
  Age: 43 Year
  Sex: Female
  Weight: 104.5 kg

DRUGS (1)
  1. AMIODARONE, 150 MG/ 3 ML APP PHARMACEUTICALS [Suspect]
     Active Substance: AMIODARONE
     Indication: ATRIAL FIBRILLATION
     Route: 041
     Dates: start: 20160519, end: 20160519

REACTIONS (3)
  - Dyspnoea [None]
  - Iodine allergy [None]
  - Heart rate increased [None]

NARRATIVE: CASE EVENT DATE: 20160519
